FAERS Safety Report 8606353-2 (Version None)
Quarter: 2012Q3

REPORT INFORMATION
  Report Type: 
  Country: None (occurrence: None)
  Receive Date: 20120820
  Receipt Date: 20120809
  Transmission Date: 20120928
  Serious: Yes (Other)
  Sender: FDA-Public Use
  Company Number: BR-ASTRAZENECA-2012SE56565

PATIENT
  Sex: Male

DRUGS (1)
  1. BRILINTA [Suspect]
     Indication: INTESTINAL OBSTRUCTION
     Route: 048
     Dates: start: 20120701

REACTIONS (3)
  - OFF LABEL USE [None]
  - ATRIAL FIBRILLATION [None]
  - SKIN DISCOLOURATION [None]
